FAERS Safety Report 26052650 (Version 1)
Quarter: 2025Q4

REPORT INFORMATION
  Report Type: Spontaneous
  Country: US (occurrence: US)
  Receive Date: 20251117
  Receipt Date: 20251117
  Transmission Date: 20260117
  Serious: No
  Sender: ALVOGEN
  Company Number: US-ALVOGEN-2025098082

PATIENT
  Sex: Female

DRUGS (3)
  1. TERIPARATIDE [Suspect]
     Active Substance: TERIPARATIDE
     Indication: Product used for unknown indication
     Dosage: PREVIOUS 1, 2 AND 3 PENS?620MCG/2.48ML
  2. TERIPARATIDE [Suspect]
     Active Substance: TERIPARATIDE
     Indication: Product used for unknown indication
     Dosage: EXPIRATION: JUL-2026?SHE GOT THE REFILL ON 29-APR-2025?4TH PEN?620MCG/2.48ML
     Dates: start: 20250430
  3. TERIPARATIDE [Suspect]
     Active Substance: TERIPARATIDE
     Indication: Product used for unknown indication
     Dosage: NEW INJECTOR 5TH PEN?620MCG/2.48ML
     Dates: start: 20250522

REACTIONS (3)
  - Device malfunction [Unknown]
  - Device operational issue [Unknown]
  - Incorrect dose administered [Unknown]

NARRATIVE: CASE EVENT DATE: 20250101
